FAERS Safety Report 6038007-3 (Version None)
Quarter: 2009Q1

REPORT INFORMATION
  Report Type: 
  Country: None (occurrence: None)
  Receive Date: 20090113
  Receipt Date: 20090113
  Transmission Date: 20090719
  Serious: Yes (Other)
  Sender: FDA-Public Use
  Company Number: None

PATIENT
  Sex: Female
  Weight: 86.1834 kg

DRUGS (6)
  1. NUVARING [Suspect]
     Indication: DYSMENORRHOEA
     Dosage: 1 RING EVERY 28 DAYS VAG
     Route: 067
     Dates: start: 20070901, end: 20080301
  2. NUVARING [Suspect]
     Indication: MENORRHAGIA
     Dosage: 1 RING EVERY 28 DAYS VAG
     Route: 067
     Dates: start: 20070901, end: 20080301
  3. NUVARING [Suspect]
     Indication: DYSMENORRHOEA
     Dosage: 1 RING EVERY 28 DAYS VAG
     Route: 067
     Dates: start: 20080801, end: 20080901
  4. NUVARING [Suspect]
     Indication: MENORRHAGIA
     Dosage: 1 RING EVERY 28 DAYS VAG
     Route: 067
     Dates: start: 20080801, end: 20080901
  5. NUVARING [Suspect]
     Indication: DYSMENORRHOEA
     Dosage: 1 RING EVERY 28 DAYS VAG
     Route: 067
     Dates: start: 20081201
  6. NUVARING [Suspect]
     Indication: MENORRHAGIA
     Dosage: 1 RING EVERY 28 DAYS VAG
     Route: 067
     Dates: start: 20081201

REACTIONS (2)
  - BLISTER [None]
  - DRUG HYPERSENSITIVITY [None]
